FAERS Safety Report 5080750-7 (Version None)
Quarter: 2006Q3

REPORT INFORMATION
  Report Type: 
  Country: None (occurrence: None)
  Receive Date: 20060809
  Receipt Date: 20060724
  Transmission Date: 20061208
  Serious: Yes (Hospitalization, Disabling, Other)
  Sender: FDA-Public Use
  Company Number: 2006AL001983

PATIENT
  Age: 84 Year
  Sex: Male

DRUGS (7)
  1. DICLOFENAC [Suspect]
     Dosage: PO
     Route: 048
  2. CLOPIDOGREL [Concomitant]
  3. ISOSORBIDE MONONITRATE [Concomitant]
  4. SIMVASTATIN [Concomitant]
  5. METOPROLOL [Concomitant]
  6. FUROSEMIDE [Concomitant]
  7. IPRATROPIUM BROMIDE [Concomitant]

REACTIONS (3)
  - BLINDNESS [None]
  - OPERATIVE HAEMORRHAGE [None]
  - VITREOUS HAEMORRHAGE [None]
